FAERS Safety Report 5420343-2 (Version None)
Quarter: 2007Q3

REPORT INFORMATION
  Report Type: 
  Country: None (occurrence: None)
  Receive Date: 20070816
  Receipt Date: 20070809
  Transmission Date: 20080115
  Serious: Yes (Other)
  Sender: FDA-Public Use
  Company Number: 163-21880-07080503

PATIENT
  Age: 51 Year

DRUGS (2)
  1. REVLIMID [Suspect]
     Indication: CHRONIC LYMPHOCYTIC LEUKAEMIA
     Dosage: 25 MG, DAILY, DAYS 1 THROUGH 21 OF 28 DAY CYCLE, ORAL
     Route: 048
  2. DEXAMETHASONE TAB [Suspect]
     Indication: PROPHYLAXIS
     Dosage: 12 MG,  ON D1-7, 4MG D8-14, DAILY, ORAL
     Route: 048

REACTIONS (9)
  - ABDOMINAL PAIN [None]
  - BACK PAIN [None]
  - BODY TEMPERATURE INCREASED [None]
  - CONDITION AGGRAVATED [None]
  - DRUG TOXICITY [None]
  - LYMPHADENOPATHY [None]
  - NEOPLASM [None]
  - PRURITUS [None]
  - RASH [None]
